FAERS Safety Report 14946702 (Version 6)
Quarter: 2019Q3

REPORT INFORMATION
  Report Type: Spontaneous
  Country: US (occurrence: US)
  Receive Date: 20180529
  Receipt Date: 20190716
  Transmission Date: 20191004
  Serious: Yes (Death, Hospitalization, Other)
  Sender: FDA-Public Use
  Company Number: US-JNJFOC-20180534211

PATIENT
  Age: 70 Year
  Sex: Female

DRUGS (41)
  1. HYDROCODONE [Concomitant]
     Active Substance: HYDROCODONE
  2. OMEPRAZOLE. [Concomitant]
     Active Substance: OMEPRAZOLE
     Dosage: 40 MG, BID
     Route: 048
  3. WELLBUTRIN [Concomitant]
     Active Substance: BUPROPION HYDROCHLORIDE
  4. DIAZEPAM. [Concomitant]
     Active Substance: DIAZEPAM
     Dosage: 5 MG, Q 6-8 HRS
     Route: 048
  5. MONTELUKAST [Concomitant]
     Active Substance: MONTELUKAST SODIUM
  6. FLUTICASONE PROPIONATE W/SALMETEROL XINAFOATE [Concomitant]
     Active Substance: FLUTICASONE PROPIONATE\SALMETEROL XINAFOATE
     Dosage: 250/50, ONE PUFF BID
  7. CYMBALTA [Concomitant]
     Active Substance: DULOXETINE HYDROCHLORIDE
  8. ESTRING [Concomitant]
     Active Substance: ESTRADIOL
     Dosage: Q 3 MONTHS
     Route: 067
  9. IBUPROFEN. [Concomitant]
     Active Substance: IBUPROFEN
  10. VOLTAREN [Concomitant]
     Active Substance: DICLOFENAC SODIUM
     Dosage: 75 MG, AS DIRECTED
     Route: 048
  11. DULOXETINE. [Concomitant]
     Active Substance: DULOXETINE
     Dosage: 60 MG, BID
     Route: 048
  12. ALBUTEROL. [Concomitant]
     Active Substance: ALBUTEROL
  13. CINNAMON. [Concomitant]
     Active Substance: CINNAMON
     Dosage: ONE, BID
     Route: 048
  14. CLOBETASOL [Concomitant]
     Active Substance: CLOBETASOL
     Dosage: UNK, BID
  15. MIRALAX [Concomitant]
     Active Substance: POLYETHYLENE GLYCOL 3350
  16. SPIRIVA [Concomitant]
     Active Substance: TIOTROPIUM BROMIDE MONOHYDRATE
     Dosage: UNK, QD
  17. EVISTA [Concomitant]
     Active Substance: RALOXIFENE HYDROCHLORIDE
     Dosage: 60 MG, AS DIRECTED
     Route: 048
  18. IMBRUVICA [Suspect]
     Active Substance: IBRUTINIB
     Indication: LUNG NEOPLASM MALIGNANT
     Dosage: 420 MG, QD
     Route: 048
     Dates: start: 20170918
  19. IMBRUVICA [Suspect]
     Active Substance: IBRUTINIB
     Dosage: 420 MG, QD
     Route: 048
     Dates: start: 20170803, end: 20180817
  20. ASPIRIN. [Suspect]
     Active Substance: ASPIRIN
     Indication: PRODUCT USED FOR UNKNOWN INDICATION
     Dosage: 81 MG, QD
     Route: 048
  21. FISH OIL [Suspect]
     Active Substance: FISH OIL
     Indication: PRODUCT USED FOR UNKNOWN INDICATION
     Dosage: 120-180 ONE CAPSULE, QD
     Route: 048
  22. IRON [Concomitant]
     Active Substance: IRON
     Dosage: 325 MG, QD
     Route: 048
  23. PLAVIX [Concomitant]
     Active Substance: CLOPIDOGREL BISULFATE
     Dosage: 75 MG, QD
     Route: 048
  24. VALTREX [Concomitant]
     Active Substance: VALACYCLOVIR HYDROCHLORIDE
     Dosage: 1000 MG, AS DIRECTED
     Route: 048
  25. SUCRALFATE. [Concomitant]
     Active Substance: SUCRALFATE
  26. POLYETHYLENE GLYCOL [Concomitant]
     Active Substance: POLYETHYLENE GLYCOLS
  27. AZITHROMYCIN ANHYDROUS. [Concomitant]
     Active Substance: AZITHROMYCIN ANHYDROUS
  28. PROCHLORPERAZINE. [Concomitant]
     Active Substance: PROCHLORPERAZINE
  29. CEFALEXIN [Concomitant]
     Active Substance: CEPHALEXIN
     Dosage: 500 MG, QD BEFORE DENTAL PROCEDURE
     Route: 048
  30. VENTOLIN [Concomitant]
     Active Substance: ALBUTEROL SULFATE
     Dosage: 2 PUFFS AS DIRECTED
  31. VIT E                              /00110501/ [Concomitant]
     Active Substance: TOCOPHEROL
  32. TRIAMTERENE. [Concomitant]
     Active Substance: TRIAMTERENE
  33. LIPITOR [Concomitant]
     Active Substance: ATORVASTATIN CALCIUM
     Dosage: 40 MG, QD
     Route: 048
  34. BIFIDOBACTERIUM LACTIS [Concomitant]
     Active Substance: BIFIDOBACTERIUM ANIMALIS LACTIS
     Dosage: UNK UNK, QD
     Route: 048
  35. IRBESARTAN AND HYDROCHLOROTHIAZIDE [Concomitant]
     Active Substance: HYDROCHLOROTHIAZIDE\IRBESARTAN
     Dosage: 150-12.5 MG, QD
     Route: 048
  36. FAMOTIDINE. [Concomitant]
     Active Substance: FAMOTIDINE
  37. COLACE [Concomitant]
     Active Substance: DOCUSATE SODIUM
     Dosage: 100 MG, BID
     Route: 048
  38. MULTIVITAMINS [Concomitant]
     Active Substance: VITAMINS
     Dosage: UNK UNK, QD
     Route: 048
  39. FOLIC ACID. [Concomitant]
     Active Substance: FOLIC ACID
     Dosage: 0.8 MG, QD
     Route: 048
  40. METOPROLOL. [Concomitant]
     Active Substance: METOPROLOL
  41. HYDROCODONE/ACETAMINOPHEN [Concomitant]
     Active Substance: ACETAMINOPHEN\HYDROCODONE
     Indication: PAIN
     Dosage: 5-325, 1 TAB, Q 4 HRS PRN
     Route: 048

REACTIONS (15)
  - Chronic obstructive pulmonary disease [Fatal]
  - Interstitial lung disease [Unknown]
  - Atrial fibrillation [Recovered/Resolved]
  - Diverticulitis [Unknown]
  - Pleural effusion [Unknown]
  - Retinal vascular occlusion [Unknown]
  - Carotid endarterectomy [Unknown]
  - Pneumonia [Recovered/Resolved]
  - Product use in unapproved indication [Unknown]
  - Haemoglobin decreased [Unknown]
  - Colitis ischaemic [Unknown]
  - Stenotrophomonas infection [Unknown]
  - Respiratory failure [Unknown]
  - Off label use [Unknown]
  - White blood cell count increased [Unknown]

NARRATIVE: CASE EVENT DATE: 20170918
